FAERS Safety Report 17467600 (Version 1)
Quarter: 2020Q1

REPORT INFORMATION
  Report Type: Spontaneous
  Country: US (occurrence: US)
  Receive Date: 20200226
  Receipt Date: 20200226
  Transmission Date: 20200409
  Serious: Yes (Other)
  Sender: FDA-Public Use
  Company Number: None

PATIENT
  Age: 52 Year
  Sex: Male
  Weight: 73.35 kg

DRUGS (1)
  1. GABAPENTIN. [Suspect]
     Active Substance: GABAPENTIN
     Indication: PAIN
     Dates: start: 20200130, end: 20200215

REACTIONS (4)
  - Violence-related symptom [None]
  - Aggression [None]
  - Negative thoughts [None]
  - Abnormal behaviour [None]

NARRATIVE: CASE EVENT DATE: 20200130
